FAERS Safety Report 9470133 (Version 2)
Quarter: 2013Q3

REPORT INFORMATION
  Report Type: Spontaneous
  Country: DE (occurrence: DE)
  Receive Date: 20130822
  Receipt Date: 20130827
  Transmission Date: 20140515
  Serious: Yes (Other)
  Sender: FDA-Public Use
  Company Number: DE-ROCHE-1264832

PATIENT
  Age: 42 Year
  Sex: Female

DRUGS (1)
  1. ALTEPLASE [Suspect]
     Indication: ACUTE MYOCARDIAL INFARCTION
     Route: 065

REACTIONS (4)
  - Haematoma [Unknown]
  - Coronary artery dissection [Unknown]
  - Cardiac aneurysm [Unknown]
  - Cardiac ventricular thrombosis [Unknown]
